FAERS Safety Report 6054119-2 (Version None)
Quarter: 2009Q1

REPORT INFORMATION
  Report Type: 
  Country: None (occurrence: None)
  Receive Date: 20090127
  Receipt Date: 20090116
  Transmission Date: 20090719
  Serious: Yes (Hospitalization)
  Sender: FDA-Public Use
  Company Number: US-BAXTER-2008BH013860

PATIENT
  Age: 57 Year
  Sex: Female

DRUGS (5)
  1. DIANEAL [Suspect]
     Indication: RENAL FAILURE CHRONIC
     Route: 033
     Dates: start: 20070601
  2. DIANEAL [Suspect]
     Indication: RENAL FAILURE CHRONIC
     Route: 033
     Dates: start: 20070601
  3. ACYCLOVIR [Suspect]
     Indication: FACIAL PALSY
     Dates: start: 20080918
  4. CORTICOSTEROIDS [Suspect]
     Indication: DRUG USE FOR UNKNOWN INDICATION
     Dates: start: 20080918
  5. ACYCLOVIR [Concomitant]
     Indication: DRUG USE FOR UNKNOWN INDICATION
     Route: 065

REACTIONS (4)
  - ENCEPHALOPATHY [None]
  - FACIAL PALSY [None]
  - FAILURE TO THRIVE [None]
  - HYPERSENSITIVITY [None]
